FAERS Safety Report 15635729 (Version 1)
Quarter: 2018Q4

REPORT INFORMATION
  Report Type: Other
  Country: BE (occurrence: BE)
  Receive Date: 20181120
  Receipt Date: 20181120
  Transmission Date: 20190205
  Serious: Yes (Other)
  Sender: FDA-Public Use
  Company Number: BE-APOTEX-2018AP024731

PATIENT
  Sex: Female

DRUGS (1)
  1. MIRTAZAPINE. [Suspect]
     Active Substance: MIRTAZAPINE
     Indication: PRODUCT USED FOR UNKNOWN INDICATION
     Dosage: 15 MG, UNK
     Route: 065

REACTIONS (6)
  - Pyrexia [Unknown]
  - Agitation [Unknown]
  - Abnormal dreams [Unknown]
  - Restless legs syndrome [Unknown]
  - Anxiety [Unknown]
  - Seizure [Unknown]
